FAERS Safety Report 20236843 (Version 1)
Quarter: 2021Q4

REPORT INFORMATION
  Report Type: Spontaneous
  Country: US (occurrence: US)
  Receive Date: 20211228
  Receipt Date: 20211228
  Transmission Date: 20220304
  Serious: Yes (Other)
  Sender: FDA-Public Use
  Company Number: US-GLAXOSMITHKLINE-US2021GSK264104

PATIENT
  Sex: Male

DRUGS (8)
  1. ZANTAC [Suspect]
     Active Substance: RANITIDINE HYDROCHLORIDE
     Indication: Intestinal ulcer
     Dosage: UNK UNK, QD
     Route: 065
     Dates: start: 198101, end: 198201
  2. ZANTAC [Suspect]
     Active Substance: RANITIDINE HYDROCHLORIDE
     Indication: Duodenal ulcer
  3. ZANTAC [Suspect]
     Active Substance: RANITIDINE HYDROCHLORIDE
     Indication: Intestinal ulcer
     Dosage: UNK UNK, QD
     Route: 065
     Dates: start: 198101, end: 198201
  4. ZANTAC [Suspect]
     Active Substance: RANITIDINE HYDROCHLORIDE
     Indication: Duodenal ulcer
  5. RANITIDINE [Suspect]
     Active Substance: RANITIDINE
     Indication: Intestinal ulcer
     Dosage: UNK, QD
     Route: 065
     Dates: start: 198001, end: 198101
  6. RANITIDINE [Suspect]
     Active Substance: RANITIDINE
     Indication: Duodenal ulcer
  7. RANITIDINE [Suspect]
     Active Substance: RANITIDINE
     Indication: Intestinal ulcer
     Dosage: UNK, QD
     Route: 065
     Dates: start: 198001, end: 198101
  8. RANITIDINE [Suspect]
     Active Substance: RANITIDINE
     Indication: Duodenal ulcer

REACTIONS (1)
  - Prostate cancer [Unknown]
